FAERS Safety Report 6234985-8 (Version None)
Quarter: 2009Q2

REPORT INFORMATION
  Report Type: 
  Country: None (occurrence: None)
  Receive Date: 20090617
  Receipt Date: 20071228
  Transmission Date: 20091009
  Serious: No
  Sender: FDA-Public Use
  Company Number: 271275

PATIENT
  Age: 86 Year
  Sex: Female
  Weight: 147 kg

DRUGS (2)
  1. LEVEMIR [Suspect]
     Indication: INSULIN-REQUIRING TYPE 2 DIABETES MELLITUS
     Dosage: 10 IU, QD, SUBCUTANEOUS
     Route: 058
     Dates: start: 20050101
  2. NOVOLOG [Suspect]
     Indication: INSULIN-REQUIRING TYPE 2 DIABETES MELLITUS
     Dosage: 6 IU, QD, SUBCUTANEOUS
     Route: 058
     Dates: start: 20050101

REACTIONS (1)
  - WEIGHT INCREASED [None]
